FAERS Safety Report 23161158 (Version 1)
Quarter: 2023Q4

REPORT INFORMATION
  Report Type: Spontaneous
  Country: FR (occurrence: FR)
  Receive Date: 20231108
  Receipt Date: 20231108
  Transmission Date: 20240110
  Serious: Yes (Death)
  Sender: FDA-Public Use
  Company Number: FR-JNJFOC-20221155535

PATIENT
  Age: 86 Year
  Sex: Male

DRUGS (3)
  1. DEXAMETHASONE [Suspect]
     Active Substance: DEXAMETHASONE
     Indication: Plasma cell myeloma
     Dosage: 10 MG/DOSE, 2 DOSES/WEEK, 2 WEEKS/CYCLE; FIRST LINE TREATMENT
     Route: 065
     Dates: end: 20201117
  2. CYCLOPHOSPHAMIDE [Suspect]
     Active Substance: CYCLOPHOSPHAMIDE
     Indication: Plasma cell myeloma
     Dosage: 1000 MG/DOSE, 1 DOSES/WEEK, 1 WEEK/CYCLE; FIRST LINE TREATMENT; DURATION 0.2 MONTHS
     Route: 065
     Dates: end: 20201117
  3. VELCADE [Suspect]
     Active Substance: BORTEZOMIB
     Indication: Plasma cell myeloma
     Dosage: 2.5 MG/DOSE, 2 DOSES/WEEK, 2 WEEKS/CYCLE; FIRST LINE TREATMENT; DURATION 0.2 MONTHS
     Route: 065
     Dates: end: 20201117

REACTIONS (4)
  - Death [Fatal]
  - General physical condition abnormal [Unknown]
  - Intentional product use issue [Unknown]
  - Off label use [Unknown]
